FAERS Safety Report 9826618 (Version 1)
Quarter: 2014Q1

REPORT INFORMATION
  Report Type: Spontaneous
  Country: US (occurrence: None)
  Receive Date: 20140115
  Receipt Date: 20140115
  Transmission Date: 20141002
  Serious: Yes (Death, Other)
  Sender: FDA-Public Use
  Company Number: CC13-1371

PATIENT
  Age: 94 Year
  Sex: Male

DRUGS (3)
  1. IMIQUIMOD [Suspect]
     Indication: BASAL CELL CARCINOMA
  2. TOPICAL 5-FLUOROURACIL [Concomitant]
  3. EVEROLIMUS [Concomitant]

REACTIONS (4)
  - Basal cell carcinoma [None]
  - Keratoacanthoma [None]
  - Ulcer [None]
  - Squamous cell carcinoma of skin [None]
